FAERS Safety Report 7131452-4 (Version None)
Quarter: 2010Q4

REPORT INFORMATION
  Report Type: 
  Country: None (occurrence: None)
  Receive Date: 20101201
  Receipt Date: 20101126
  Transmission Date: 20110411
  Serious: Yes (Hospitalization)
  Sender: FDA-Public Use
  Company Number: FR-PFIZER INC-2010158146

PATIENT
  Age: 50 Year
  Sex: Male

DRUGS (12)
  1. ALDACTONE [Suspect]
  2. SORIATANE [Suspect]
     Dosage: 10 MG, 1X/DAY
  3. CRESTOR [Suspect]
     Dosage: 10 MG, UNK
  4. IXEL [Suspect]
     Dosage: 1 DF, 1X/DAY
  5. CORVASAL [Suspect]
     Dosage: 2 MG, 3X/DAY
  6. NEXIUM [Concomitant]
     Dosage: 40 MG A DAY
  7. SPIRONOLACTONE [Concomitant]
     Dosage: 2 A DAY
  8. PLAVIX [Concomitant]
     Dosage: 75 MG PER DAY
  9. KARDEGIC [Concomitant]
     Dosage: 160 MG PER DAY
  10. TARDYFERON [Concomitant]
     Dosage: UNK
  11. SYMBICORT [Concomitant]
     Dosage: 400 UG, 2X/DAY
  12. VENTOLIN [Concomitant]
     Dosage: UNK

REACTIONS (10)
  - ACUTE RESPIRATORY DISTRESS SYNDROME [None]
  - BRONCHOSPASM [None]
  - DRUG TOXICITY [None]
  - HYPERKALAEMIA [None]
  - METABOLIC ACIDOSIS [None]
  - RENAL FAILURE [None]
  - RHABDOMYOLYSIS [None]
  - STAPHYLOCOCCAL INFECTION [None]
  - SUICIDE ATTEMPT [None]
  - VENTRICULAR TACHYCARDIA [None]
